FAERS Safety Report 8115788-6 (Version None)
Quarter: 2012Q1

REPORT INFORMATION
  Report Type: 
  Country: None (occurrence: None)
  Receive Date: 20120206
  Receipt Date: 20120126
  Transmission Date: 20120608
  Serious: Yes (Other)
  Sender: FDA-Public Use
  Company Number: DE-ROCHE-1034276

PATIENT
  Age: 25 Year
  Sex: Male

DRUGS (2)
  1. THERAPY (UNK INGREDIENTS) [Concomitant]
  2. TAMIFLU [Suspect]
     Indication: PRODUCT USED FOR UNKNOWN INDICATION
     Route: 048

REACTIONS (3)
  - DIARRHOEA [None]
  - DRUG ADMINISTRATION ERROR [None]
  - OVERDOSE [None]
